FAERS Safety Report 18959379 (Version 1)
Quarter: 2021Q1

REPORT INFORMATION
  Report Type: Report from Study
  Country: CA (occurrence: CA)
  Receive Date: 20210302
  Receipt Date: 20210302
  Transmission Date: 20210420
  Serious: Yes (Hospitalization)
  Sender: FDA-Public Use
  Company Number: CA-CELGENEUS-CAN-20210206530

PATIENT
  Age: 5 Year
  Sex: Male
  Weight: 13.6 kg

DRUGS (4)
  1. AZACITIDINE. [Suspect]
     Active Substance: AZACITIDINE
     Indication: EPENDYMOMA
     Route: 065
     Dates: start: 20200520, end: 20210208
  2. CARBOPLATIN. [Suspect]
     Active Substance: CARBOPLATIN
     Indication: BRAIN NEOPLASM
  3. CARBOPLATIN. [Suspect]
     Active Substance: CARBOPLATIN
     Indication: EPENDYMOMA
     Dosage: 4
     Route: 065
     Dates: start: 20200603, end: 20210216
  4. AZACITIDINE. [Suspect]
     Active Substance: AZACITIDINE
     Indication: BRAIN NEOPLASM

REACTIONS (4)
  - Hypoxia [Not Recovered/Not Resolved]
  - Atelectasis [Not Recovered/Not Resolved]
  - Pneumonia [Not Recovered/Not Resolved]
  - Febrile neutropenia [Not Recovered/Not Resolved]

NARRATIVE: CASE EVENT DATE: 202102
